FAERS Safety Report 5408394-5 (Version None)
Quarter: 2007Q3

REPORT INFORMATION
  Report Type: 
  Country: None (occurrence: None)
  Receive Date: 20070806
  Receipt Date: 20070721
  Transmission Date: 20080115
  Serious: Yes (Life-Threatening, Hospitalization)
  Sender: FDA-Public Use
  Company Number: ACO_00360_2007

PATIENT
  Sex: Female
  Weight: 7.3 kg

DRUGS (12)
  1. TERNELIN (TERNELIN - TIZANIDINE HYDROCHLORIDE) [Suspect]
     Indication: HYPERTONIA
     Dosage: 1.5 MG QD ORAL
     Route: 048
     Dates: start: 20070119
  2. DANTRIUM [Concomitant]
  3. DEPAKENE [Concomitant]
  4. LANSOPRAZOLE [Concomitant]
  5. TRICLORYL [Concomitant]
  6. MUCODYNE [Concomitant]
  7. MUCOSAL [Concomitant]
  8. CLARITHROMYCIN [Concomitant]
  9. MIYA-BM [Concomitant]
  10. MARZULENE S [Concomitant]
  11. DIASTASE [Concomitant]
  12. ALBUMIN TANNATE [Concomitant]

REACTIONS (7)
  - BLOOD INSULIN INCREASED [None]
  - DIARRHOEA [None]
  - HYPERHIDROSIS [None]
  - HYPOGLYCAEMIA [None]
  - INSULIN C-PEPTIDE INCREASED [None]
  - PALLOR [None]
  - PNEUMONIA [None]
